FAERS Safety Report 5612063-6 (Version None)
Quarter: 2008Q1

REPORT INFORMATION
  Report Type: 
  Country: None (occurrence: None)
  Receive Date: 20080204
  Receipt Date: 20080130
  Transmission Date: 20080703
  Serious: Yes (Death)
  Sender: FDA-Public Use
  Company Number: PHEH2008US01366

PATIENT
  Age: 15 Year
  Sex: Male

DRUGS (4)
  1. RITALIN [Suspect]
     Indication: ATTENTION DEFICIT/HYPERACTIVITY DISORDER
  2. ALCOHOL [Suspect]
  3. OPANA ER [Suspect]
     Dosage: 20 MG, UNK
  4. ANTIDEPRESSANTS [Concomitant]

REACTIONS (4)
  - DRUG LEVEL INCREASED [None]
  - EPISTAXIS [None]
  - INTENTIONAL DRUG MISUSE [None]
  - UNRESPONSIVE TO STIMULI [None]
